FAERS Safety Report 23492996 (Version 1)
Quarter: 2024Q1

REPORT INFORMATION
  Report Type: Report from Study
  Country: US (occurrence: US)
  Receive Date: 20240207
  Receipt Date: 20240207
  Transmission Date: 20240410
  Serious: Yes (Hospitalization, Other)
  Sender: FDA-Public Use
  Company Number: US-ABBVIE-5620191

PATIENT
  Age: 61 Year
  Sex: Male

DRUGS (1)
  1. VENCLEXTA [Suspect]
     Active Substance: VENETOCLAX
     Indication: Product used for unknown indication
     Dosage: WITH FOOD AND A FULL GLASS OF WATER FOR 21 DAYS ON THEN 7 DAYS OFF?FORM STRENGTH: 100 MG
     Route: 048
     Dates: start: 2023, end: 20231204

REACTIONS (1)
  - Stem cell transplant [Recovering/Resolving]

NARRATIVE: CASE EVENT DATE: 20240123
